FAERS Safety Report 4372054-2 (Version None)
Quarter: 2004Q2

REPORT INFORMATION
  Report Type: 
  Country: None (occurrence: None)
  Receive Date: 20040603
  Receipt Date: 20040603
  Transmission Date: 20050107
  Serious: Yes (Other)
  Sender: FDA-Public Use
  Company Number: None

PATIENT
  Sex: Female

DRUGS (1)
  1. REPRONEX [Suspect]
     Indication: INFERTILITY
     Dosage: 75 IU/ 4 VIALS BID IM
     Route: 030
     Dates: start: 20040518, end: 20040523

REACTIONS (1)
  - RASH MACULO-PAPULAR [None]
